FAERS Safety Report 5852090-7 (Version None)
Quarter: 2008Q3

REPORT INFORMATION
  Report Type: 
  Country: None (occurrence: None)
  Receive Date: 20080819
  Receipt Date: 20080808
  Transmission Date: 20090109
  Serious: Yes (Hospitalization, Other)
  Sender: FDA-Public Use
  Company Number: 15396

PATIENT
  Age: 77 Year
  Sex: Male

DRUGS (4)
  1. MORPHINE SULFATE [Suspect]
     Indication: PAIN
  2. GLYBURIDE FOR  DIABETES [Concomitant]
  3. TEMAZEPAM FOR SLEEP [Concomitant]
  4. TYLENOL W/ CODEINE [Concomitant]

REACTIONS (3)
  - CONSTIPATION [None]
  - PHARMACEUTICAL PRODUCT COMPLAINT [None]
  - PROCTALGIA [None]
